FAERS Safety Report 7350520-5 (Version None)
Quarter: 2011Q1

REPORT INFORMATION
  Report Type: 
  Country: None (occurrence: None)
  Receive Date: 20110309
  Receipt Date: 20110309
  Transmission Date: 20110831
  Serious: Yes (Life-Threatening, Hospitalization)
  Sender: FDA-Public Use
  Company Number: None

PATIENT
  Sex: Female
  Weight: 84 kg

DRUGS (1)
  1. LUTERA [Suspect]
     Indication: MENORRHAGIA
     Dosage: 1 TABLET DAILY PO
     Route: 048
     Dates: start: 20091215, end: 20101204

REACTIONS (3)
  - DILATATION VENTRICULAR [None]
  - PULMONARY EMBOLISM [None]
  - PNEUMONIA [None]
